FAERS Safety Report 24683701 (Version 2)
Quarter: 2025Q1

REPORT INFORMATION
  Report Type: Report from Study
  Country: ES (occurrence: ES)
  Receive Date: 20241202
  Receipt Date: 20250224
  Transmission Date: 20250408
  Serious: Yes (Hospitalization, Other)
  Sender: TAKEDA
  Company Number: ES-TAKEDA-2024TUS117555

PATIENT
  Age: 43 Year
  Sex: Female

DRUGS (21)
  1. TEDUGLUTIDE [Suspect]
     Active Substance: TEDUGLUTIDE
     Indication: Short-bowel syndrome
     Dosage: 2.4 MILLIGRAM, QD
     Dates: start: 20180323, end: 20190704
  2. TEDUGLUTIDE [Suspect]
     Active Substance: TEDUGLUTIDE
     Dosage: 2.6 MILLIGRAM, QD
     Dates: start: 20190704, end: 20191119
  3. TEDUGLUTIDE [Suspect]
     Active Substance: TEDUGLUTIDE
     Dosage: 2.4 MILLIGRAM, QD
     Dates: start: 20191119, end: 20200421
  4. TEDUGLUTIDE [Suspect]
     Active Substance: TEDUGLUTIDE
     Dosage: 2.5 MILLIGRAM, QD
     Dates: start: 20200421, end: 20220521
  5. TEDUGLUTIDE [Suspect]
     Active Substance: TEDUGLUTIDE
     Dosage: 2.5 MILLIGRAM, QD
     Dates: start: 20220601, end: 20230314
  6. TEDUGLUTIDE [Suspect]
     Active Substance: TEDUGLUTIDE
     Dosage: 2.3 MILLIGRAM, QD
     Dates: start: 20230314, end: 20230321
  7. TEDUGLUTIDE [Suspect]
     Active Substance: TEDUGLUTIDE
     Dosage: 1.2 MILLIGRAM, QD
     Dates: start: 20230321
  8. ESTRADIOL [Concomitant]
     Active Substance: ESTRADIOL
     Indication: Premature menopause
     Dosage: 25 MICROGRAM, QD
  9. ESTRADIOL [Concomitant]
     Active Substance: ESTRADIOL
     Dosage: 4.59 MILLIGRAM, QD
     Dates: start: 20220905
  10. LANSOPRAZOLE [Concomitant]
     Active Substance: LANSOPRAZOLE
     Indication: Duodenogastric reflux
     Dosage: 30 MILLIGRAM, QD
     Dates: start: 20161209
  11. LANSOPRAZOLE [Concomitant]
     Active Substance: LANSOPRAZOLE
  12. LORMETAZEPAM [Concomitant]
     Active Substance: LORMETAZEPAM
     Indication: Insomnia
     Dosage: 2 MILLIGRAM, QD
     Dates: start: 20150409
  13. TRAMADOL [Concomitant]
     Active Substance: TRAMADOL
     Indication: Pain
     Dosage: 75 MILLIGRAM, TID
     Dates: start: 20221102
  14. ACETAMINOPHEN [Concomitant]
     Active Substance: ACETAMINOPHEN
     Indication: Pain
     Dosage: 650 MILLIGRAM, TID
     Dates: start: 20221102
  15. ENALAPRIL [Concomitant]
     Active Substance: ENALAPRIL
     Indication: Hypertension
     Dosage: 2.5 MILLIGRAM, QD
     Dates: start: 20220331
  16. ALPRAZOLAM [Concomitant]
     Active Substance: ALPRAZOLAM
     Indication: Anxiety
     Dosage: 1 MILLIGRAM, BID
     Dates: start: 20170301
  17. CHOLESTYRAMINE [Concomitant]
     Active Substance: CHOLESTYRAMINE
     Indication: Bile acid malabsorption
     Dosage: 4 GRAM, BID
     Dates: start: 20230126
  18. CALCIUM CARBONATE [Concomitant]
     Active Substance: CALCIUM CARBONATE
     Indication: Osteoporosis
     Dosage: 25000 MILLIGRAM, BID
     Dates: start: 20230425
  19. PANCRELIPASE [Concomitant]
     Active Substance: PANCRELIPASE
     Indication: Malabsorption
     Dosage: 35000 INTERNATIONAL UNIT, QID
     Dates: start: 20230208
  20. LOPERAMIDE [Concomitant]
     Active Substance: LOPERAMIDE
     Indication: Short-bowel syndrome
     Dosage: 2 MILLIGRAM, TID
     Dates: start: 20230302
  21. RIFAXIMIN [Concomitant]
     Active Substance: RIFAXIMIN
     Indication: Gastrointestinal microorganism overgrowth
     Dosage: 400 MILLIGRAM, BID
     Dates: start: 20230302

REACTIONS (1)
  - Chronic kidney disease [Recovered/Resolved with Sequelae]

NARRATIVE: CASE EVENT DATE: 20240927
